FAERS Safety Report 21874938 (Version 2)
Quarter: 2023Q1

REPORT INFORMATION
  Report Type: Report from Study
  Country: KR (occurrence: KR)
  Receive Date: 20230117
  Receipt Date: 20230120
  Transmission Date: 20230417
  Serious: Yes (Life-Threatening, Hospitalization)
  Sender: FDA-Public Use
  Company Number: KR-GILEAD-2022-0607922

PATIENT
  Sex: Female
  Weight: 65 kg

DRUGS (22)
  1. SACITUZUMAB GOVITECAN [Suspect]
     Active Substance: SACITUZUMAB GOVITECAN
     Indication: Non-small cell lung cancer metastatic
     Dosage: 650 MG
     Route: 042
     Dates: start: 20221124, end: 20221124
  2. SACITUZUMAB GOVITECAN [Suspect]
     Active Substance: SACITUZUMAB GOVITECAN
     Dosage: 650 MG
     Route: 042
     Dates: start: 20221202, end: 20221202
  3. PEMBROLIZUMAB [Suspect]
     Active Substance: PEMBROLIZUMAB
     Indication: Non-small cell lung cancer metastatic
     Dosage: 200 MG
     Route: 042
     Dates: start: 20221124, end: 20221124
  4. CARBOPLATIN [Suspect]
     Active Substance: CARBOPLATIN
     Indication: Non-small cell lung cancer metastatic
     Dosage: 483.5 MG
     Route: 042
     Dates: start: 20221124, end: 20221124
  5. FILGRASTIM [Concomitant]
     Active Substance: FILGRASTIM
     Indication: Prophylaxis
     Route: 058
     Dates: start: 20221125, end: 20221125
  6. FILGRASTIM [Concomitant]
     Active Substance: FILGRASTIM
     Indication: Neutropenia
     Dosage: UNK
     Route: 058
     Dates: start: 20221201, end: 20221201
  7. FILGRASTIM [Concomitant]
     Active Substance: FILGRASTIM
     Dosage: UNK
     Dates: start: 20221203
  8. ACETAMINOPHEN [Concomitant]
     Active Substance: ACETAMINOPHEN
     Indication: Prophylaxis
     Dosage: UNK
     Route: 048
     Dates: start: 20221124
  9. OSARTAN PLUS [Concomitant]
     Indication: Hypertension
     Dosage: UNK
     Route: 048
     Dates: start: 2020, end: 20221107
  10. OSARTAN PLUS [Concomitant]
     Dosage: UNK
     Route: 048
     Dates: start: 20221110
  11. TANTUM [BENZYDAMINE HYDROCHLORIDE] [Concomitant]
     Indication: Prophylaxis
     Dosage: UNK
     Route: 061
     Dates: start: 20221124
  12. SODIUM BICARBONATE [Concomitant]
     Active Substance: SODIUM BICARBONATE
     Indication: Prophylaxis
     Dosage: UNK
     Route: 061
     Dates: start: 20221124
  13. CHOLINE ALFOSCERATE [Concomitant]
     Active Substance: CHOLINE ALFOSCERATE
     Indication: Prophylaxis
     Dosage: UNK
     Route: 048
     Dates: start: 2020
  14. AMOSARTAN [Concomitant]
     Indication: Hypertension
     Route: 048
     Dates: start: 20221108, end: 20221109
  15. MEPERIDINE [Concomitant]
     Active Substance: MEPERIDINE
     Indication: Prophylaxis
     Dosage: UNK
     Route: 042
     Dates: start: 20221108, end: 20221108
  16. DEXAMETHASONE [Concomitant]
     Active Substance: DEXAMETHASONE
     Indication: Prophylaxis
     Route: 042
     Dates: start: 20221124, end: 20221124
  17. TAGAMET [Concomitant]
     Active Substance: CIMETIDINE
     Indication: Prophylaxis
     Route: 042
     Dates: start: 20221124
  18. ALOXI [Concomitant]
     Active Substance: PALONOSETRON HYDROCHLORIDE
     Indication: Prophylaxis
     Route: 042
     Dates: start: 20221124
  19. EMEND [Concomitant]
     Active Substance: APREPITANT
     Indication: Prophylaxis
     Dosage: UNK
     Route: 042
     Dates: start: 20221124
  20. LACTICARE ZEMAGIS [Concomitant]
     Indication: Pruritus
     Dosage: UNK
     Route: 061
     Dates: start: 20221201
  21. MACPERAN [METOCLOPRAMIDE HYDROCHLORIDE] [Concomitant]
     Indication: Nausea
     Dosage: UNK
     Route: 048
     Dates: start: 20221201
  22. FEROBA YOU SR [Concomitant]
     Indication: Anaemia
     Dosage: UNK
     Route: 048
     Dates: start: 20221202

REACTIONS (4)
  - Septic shock [Recovered/Resolved with Sequelae]
  - Febrile neutropenia [Recovered/Resolved]
  - COVID-19 [Recovered/Resolved]
  - Septic shock [Recovered/Resolved]

NARRATIVE: CASE EVENT DATE: 20221206
